FAERS Safety Report 4502456-2 (Version None)
Quarter: 2004Q4

REPORT INFORMATION
  Report Type: 
  Country: None (occurrence: None)
  Receive Date: 20041110
  Receipt Date: 20041029
  Transmission Date: 20050328
  Serious: Yes (Life-Threatening)
  Sender: FDA-Public Use
  Company Number: 2004AC00620

PATIENT
  Age: 42 Year
  Sex: Male
  Weight: 80 kg

DRUGS (6)
  1. DIPRIVAN [Suspect]
     Indication: STUPOR
     Dosage: 6 UG/ML ONCE IV
     Route: 042
     Dates: start: 20041014, end: 20041014
  2. SERTRALINE HCL [Concomitant]
  3. XANAX [Concomitant]
  4. LORAMET [Concomitant]
  5. ZOCOR [Concomitant]
  6. ANTABUSE [Concomitant]

REACTIONS (5)
  - ATRIOVENTRICULAR BLOCK [None]
  - BRADYCARDIA [None]
  - BRAIN OEDEMA [None]
  - NODAL RHYTHM [None]
  - VENTRICULAR TACHYCARDIA [None]
